FAERS Safety Report 15698039 (Version 2)
Quarter: 2019Q2

REPORT INFORMATION
  Report Type: Report from Study
  Country: US (occurrence: US)
  Receive Date: 20181207
  Receipt Date: 20190416
  Transmission Date: 20190711
  Serious: Yes (Other)
  Sender: FDA-Public Use
  Company Number: PHEH2018US051120

PATIENT
  Sex: Female

DRUGS (1)
  1. COSENTYX [Suspect]
     Active Substance: SECUKINUMAB
     Indication: PSORIASIS
     Route: 058

REACTIONS (6)
  - Diarrhoea [Unknown]
  - Therapeutic product effect incomplete [Unknown]
  - Bronchitis [Unknown]
  - Decreased immune responsiveness [Unknown]
  - Clostridium difficile colitis [Unknown]
  - Psoriasis [Unknown]
